FAERS Safety Report 4286704-2 (Version None)
Quarter: 2004Q1

REPORT INFORMATION
  Report Type: 
  Country: None (occurrence: None)
  Receive Date: 20040204
  Receipt Date: 20040126
  Transmission Date: 20041129
  Serious: Yes (Hospitalization)
  Sender: FDA-Public Use
  Company Number: HQWYE698015SEP03

PATIENT
  Age: 54 Year
  Sex: Male

DRUGS (5)
  1. CYCLOSPORINE [Suspect]
     Indication: PROPHYLAXIS AGAINST TRANSPLANT REJECTION
     Dosage: 225 MG 1X PER 1 DAY ORAL
     Route: 048
     Dates: start: 20010515
  2. MYCOPHENOLATE MOFETIL (MYCOPHENOLATE MOFETIL, ) [Suspect]
     Indication: IMMUNOSUPPRESSION
     Dosage: 1500 MG 1X PER 1 DAY ORAL
     Route: 048
     Dates: start: 20010816
  3. PREDNISONE [Suspect]
     Indication: IMMUNOSUPPRESSION
     Dosage: 7.5 MG 1X PER 1 DAY ORAL
     Route: 048
     Dates: start: 20010612
  4. NIFEDIPINE [Concomitant]
  5. DOXAZOSIN MESYLATE [Concomitant]

REACTIONS (5)
  - ASTROCYTOMA [None]
  - BRAIN OEDEMA [None]
  - IMMUNOSUPPRESSION [None]
  - NEOPLASM RECURRENCE [None]
  - PAPILLOEDEMA [None]
